FAERS Safety Report 5232167-X (Version None)
Quarter: 2007Q1

REPORT INFORMATION
  Report Type: 
  Country: None (occurrence: None)
  Receive Date: 20061205
  Receipt Date: 20061012
  Transmission Date: 20070707
  Serious: No
  Sender: FDA-Public Use
  Company Number: PHEH2006US10264

PATIENT
  Sex: Male

DRUGS (14)
  1. EXJADE [Suspect]
     Indication: BLOOD PRODUCT TRANSFUSION DEPENDENT
     Dosage: 1250 MG,QD,ORAL
     Route: 048
     Dates: start: 20060401
  2. PREDNISONE TAB [Suspect]
     Indication: PERICARDIAL EFFUSION
  3. LASIX [Concomitant]
  4. ASPIRIN [Concomitant]
  5. TOPROL-XL [Concomitant]
  6. MULTIVITAMINS (ASCORBIC ACID, ERGOCALCIFEROL, FOLIC ACID, NICOTINAMIDE [Concomitant]
  7. VITAMIN E [Concomitant]
  8. COQ10 (UBIDECARENONE) [Concomitant]
  9. NATURAL REMEDIES (NATURAL REMEDIES) [Concomitant]
  10. ALPHA LIPOIC ACID (THIOCTIC ACID) [Concomitant]
  11. GRAPE SEED EXTRACT (VITIS VINIFFERA EXTRACT) [Concomitant]
  12. OMEGA-3 (OMEGA-3 TRIGLYCERIDES) [Concomitant]
  13. OMEGA-6 FATTY ACIDS (OMEGA-6 FATTY ACIDS) [Concomitant]
  14. OMEGA /ARG/ (CARBINOXAMINE MALEATE) [Concomitant]

REACTIONS (2)
  - ABDOMINAL DISTENSION [None]
  - SERUM FERRITIN INCREASED [None]
